FAERS Safety Report 16697934 (Version 2)
Quarter: 2019Q3

REPORT INFORMATION
  Report Type: Spontaneous
  Country: DE (occurrence: DE)
  Receive Date: 20190813
  Receipt Date: 20190814
  Transmission Date: 20191004
  Serious: Yes (Hospitalization)
  Sender: FDA-Public Use
  Company Number: DE-PFIZER INC-2019342966

PATIENT
  Age: 80 Year
  Sex: Female

DRUGS (15)
  1. FOLIC ACID. [Concomitant]
     Active Substance: FOLIC ACID
     Dosage: UNK MG, 1-0-0-0
  2. PREGABALIN. [Suspect]
     Active Substance: PREGABALIN
     Dosage: 50 MG, 2X/DAY, (1-0-1-0)
  3. METOPROLOL. [Suspect]
     Active Substance: METOPROLOL
     Dosage: 23.75 MG, 1X/DAY, (1-0-0-0)
  4. DIGITOXIN [Concomitant]
     Active Substance: DIGITOXIN
     Dosage: 0.05 MG, 1-0-0-0; PAUSE ON SUNDAY
  5. DEKRISTOL [Concomitant]
     Active Substance: CHOLECALCIFEROL
     Dosage: 20000 IE, 1X/WEEK
  6. LEVODOPA/CARBIDOPA [Concomitant]
     Active Substance: CARBIDOPA\LEVODOPA
     Dosage: 100|25 MG, 1-1-1-0
  7. AMLODIPINE BESILATE [Suspect]
     Active Substance: AMLODIPINE BESYLATE
     Dosage: 5 MG, 1X/DAY, ( 0-0-1-0)
  8. RAMIPRIL. [Suspect]
     Active Substance: RAMIPRIL
     Dosage: 5 MG, 1X/DAY, (0-0-1-0)
  9. MADOPAR [Concomitant]
     Active Substance: BENSERAZIDE HYDROCHLORIDE\LEVODOPA
     Dosage: 100 (100MG/25MG, 1-0-0-0)
  10. PHENPROCOUMON [Concomitant]
     Active Substance: PHENPROCOUMON
     Dosage: 3 MG, FOR INR
  11. METAMIZOLE [Concomitant]
     Active Substance: METAMIZOLE
     Dosage: UNK MG, AS NEEDED, (DROPS)
  12. TORASEMID [Suspect]
     Active Substance: TORSEMIDE
     Dosage: 5 MG, 3X/DAY, (2-1-0-0)
  13. NEUPRO [Suspect]
     Active Substance: ROTIGOTINE
     Dosage: 6 MG, 1X/DAY (1-0-0-0)
     Route: 062
  14. PANTOPRAZOLE [Concomitant]
     Active Substance: PANTOPRAZOLE
     Dosage: 20 MG, 0-0-1-0
  15. AZILECT [Concomitant]
     Active Substance: RASAGILINE MESYLATE
     Dosage: UNK MG, 1-0-0-0

REACTIONS (3)
  - Dizziness [Unknown]
  - Fall [Unknown]
  - Presyncope [Unknown]
